FAERS Safety Report 14323995 (Version 2)
Quarter: 2018Q1

REPORT INFORMATION
  Report Type: Spontaneous
  Country: US (occurrence: US)
  Receive Date: 20171226
  Receipt Date: 20180118
  Transmission Date: 20180509
  Serious: Yes (Death, Hospitalization)
  Sender: FDA-Public Use
  Company Number: US-NOVOPROD-577942

PATIENT
  Age: 80 Year
  Sex: Female
  Weight: 56.69 kg

DRUGS (3)
  1. NOVOLOG [Suspect]
     Active Substance: INSULIN ASPART
     Indication: TYPE 1 DIABETES MELLITUS
     Dosage: SLIDING SCALE
     Route: 058
     Dates: end: 20171206
  2. NOVOLOG [Suspect]
     Active Substance: INSULIN ASPART
     Dosage: 6 U, TID WITH MEALS
     Route: 058
     Dates: start: 20171206
  3. LANTUS [Concomitant]
     Active Substance: INSULIN GLARGINE
     Indication: TYPE 1 DIABETES MELLITUS
     Dosage: 15 U, QD (AM)
     Route: 058

REACTIONS (5)
  - Diabetic ketoacidosis [Unknown]
  - Blood glucose fluctuation [Not Recovered/Not Resolved]
  - Myocardial infarction [Fatal]
  - Diabetic ketoacidosis [Not Recovered/Not Resolved]
  - Blood glucose fluctuation [Not Recovered/Not Resolved]

NARRATIVE: CASE EVENT DATE: 2017
